FAERS Safety Report 7214365-9 (Version None)
Quarter: 2010Q4

REPORT INFORMATION
  Report Type: 
  Country: None (occurrence: None)
  Receive Date: 20101126
  Receipt Date: 20100811
  Transmission Date: 20110411
  Serious: Yes (Disabling)
  Sender: FDA-Public Use
  Company Number: WAES 1008USA01465

PATIENT
  Sex: Female

DRUGS (4)
  1. FOSAMAX [Suspect]
     Indication: OSTEOPOROSIS
     Dosage: PO ; PO
     Route: 048
     Dates: start: 20021001, end: 20060901
  2. FOSAMAX [Suspect]
     Indication: OSTEOPOROSIS PROPHYLAXIS
     Dosage: PO ; PO
     Route: 048
     Dates: start: 20021001, end: 20060901
  3. FOSAMAX [Suspect]
     Indication: OSTEOPOROSIS
     Dosage: PO ; PO
     Route: 048
     Dates: start: 20031101, end: 20070301
  4. FOSAMAX [Suspect]
     Indication: OSTEOPOROSIS PROPHYLAXIS
     Dosage: PO ; PO
     Route: 048
     Dates: start: 20031101, end: 20070301

REACTIONS (1)
  - OSTEONECROSIS [None]
